FAERS Safety Report 6614887-5 (Version None)
Quarter: 2010Q1

REPORT INFORMATION
  Report Type: 
  Country: None (occurrence: None)
  Receive Date: 20100305
  Receipt Date: 20100223
  Transmission Date: 20100710
  Serious: Yes (Hospitalization)
  Sender: FDA-Public Use
  Company Number: US-BIOGENIDEC-2010BI006310

PATIENT
  Age: 53 Year
  Sex: Female

DRUGS (1)
  1. AVONEX [Suspect]
     Indication: MULTIPLE SCLEROSIS
     Route: 030
     Dates: start: 20000717

REACTIONS (4)
  - APHAGIA [None]
  - CHEST DISCOMFORT [None]
  - HYPOAESTHESIA FACIAL [None]
  - PHARYNGEAL HYPOAESTHESIA [None]
